FAERS Safety Report 5087366-7 (Version None)
Quarter: 2006Q3

REPORT INFORMATION
  Report Type: 
  Country: None (occurrence: None)
  Receive Date: 20060821
  Receipt Date: 20060801
  Transmission Date: 20061208
  Serious: Yes (Hospitalization)
  Sender: FDA-Public Use
  Company Number: 225625

PATIENT
  Age: 71 Year
  Sex: Male
  Weight: 68 kg

DRUGS (6)
  1. BEVACIZUMAB (BEVACIZUMAB) PWDR + SOLVENT, INFUSION SOLN, 100MG [Suspect]
     Indication: METASTATIC RENAL CELL CARCINOMA
     Dosage: 10 MG/KG, Q2W, INTRAVENOUS
     Route: 042
     Dates: start: 20051006, end: 20060522
  2. INTERFERON ALPHA2-A (INTERFERON ALFA-2A) [Suspect]
     Indication: METASTATIC RENAL CELL CARCINOMA
     Dosage: 3000000 IU, 3/WEEK, SUBCUTANEOUS
     Route: 058
     Dates: start: 20051006, end: 20060522
  3. ACETAMINOPHEN [Concomitant]
  4. ATACAND [Concomitant]
  5. ZOMETA [Concomitant]
  6. MOVICOL (ELECTROLYTES NOS, POLYETHYLENE GLYCOL) [Concomitant]

REACTIONS (6)
  - ASTHENIA [None]
  - CEREBROVASCULAR ACCIDENT [None]
  - GLIOSIS [None]
  - IRRITABILITY [None]
  - STRABISMUS [None]
  - WEIGHT DECREASED [None]
